FAERS Safety Report 9128678 (Version 1)
Quarter: 2013Q1

REPORT INFORMATION
  Report Type: Spontaneous
  Country: DE (occurrence: DE)
  Receive Date: 20130228
  Receipt Date: 20130228
  Transmission Date: 20140127
  Serious: Yes (Hospitalization, Other)
  Sender: FDA-Public Use
  Company Number: PHHY2013DE018739

PATIENT
  Age: 0 Year
  Sex: Male
  Weight: 1.97 kg

DRUGS (10)
  1. SANDIMMUN [Suspect]
     Indication: SCLERODERMA
     Dosage: MATERNAL DOSE: 150 MG/D (2X 75 MG)
     Route: 064
     Dates: start: 20111117, end: 20120809
  2. PANTOZAL [Concomitant]
     Indication: GASTROOESOPHAGEAL REFLUX DISEASE
     Dosage: MATERNAL DOSE 40 MG/DAY
     Route: 064
     Dates: start: 2008
  3. RIOPAN [Concomitant]
     Indication: DYSPEPSIA
     Route: 064
     Dates: start: 20111117, end: 20111212
  4. TALCID [Concomitant]
     Indication: DYSPEPSIA
     Route: 064
     Dates: start: 2010
  5. GAVISCON [Concomitant]
     Indication: DYSPEPSIA
     Dosage: MATERNAL DOSE: 500 MG/DAY (BIS 250)/267 MG/D (2X133.4/160 MG/DAY 2X 80)
     Route: 064
     Dates: start: 20111117, end: 20120809
  6. FRAGMIN P [Concomitant]
     Indication: THROMBOSIS PROPHYLAXIS
     Dosage: MATERNAL DOSE 5000 IE/DAY
     Route: 064
     Dates: start: 20111205, end: 20111230
  7. VIGANTOLETTEN [Concomitant]
     Indication: VITAMIN D DEFICIENCY
     Dosage: MATERNAL DOSE 1000 IE/DAY
     Route: 064
     Dates: start: 20111117, end: 20120809
  8. ORTHOMOL [Concomitant]
     Indication: PROPHYLAXIS OF NEURAL TUBE DEFECT
     Dosage: MATERNAL DOSE: 0.5 MG/DAY
     Route: 064
  9. RENNIE [Concomitant]
     Indication: DYSPEPSIA
     Dosage: MATERNAL DOSE: 8160 MG/D/960 MG/D MAX/6 TO 12 TABLETS PER DAY
     Route: 064
  10. ANTI-D IMMUNOGLOBULIN [Concomitant]
     Indication: PROPHYLAXIS AGAINST RH ISOIMMUNISATION
     Route: 064

REACTIONS (3)
  - Hypoglycaemia neonatal [Recovered/Resolved]
  - Temperature regulation disorder [Recovered/Resolved]
  - Small for dates baby [Recovered/Resolved]
